FAERS Safety Report 9587684 (Version 1)
Quarter: 2013Q4

REPORT INFORMATION
  Report Type: Spontaneous
  Country: US (occurrence: US)
  Receive Date: 20131003
  Receipt Date: 20131003
  Transmission Date: 20140711
  Serious: No
  Sender: FDA-Public Use
  Company Number: US-BAXTER-2013BAX036851

PATIENT
  Age: 5 Year
  Sex: 0
  Weight: 23.7 kg

DRUGS (1)
  1. GAMMAGARD LIQUID [Suspect]
     Indication: PRODUCT USED FOR UNKNOWN INDICATION
     Route: 042

REACTIONS (3)
  - Incorrect drug administration rate [Recovered/Resolved]
  - Device issue [Recovered/Resolved]
  - No adverse event [Recovered/Resolved]
